FAERS Safety Report 9508528 (Version 3)
Quarter: 2013Q3

REPORT INFORMATION
  Report Type: Spontaneous
  Country: IT (occurrence: IT)
  Receive Date: 20130909
  Receipt Date: 20130918
  Transmission Date: 20140515
  Serious: Yes (Other)
  Sender: FDA-Public Use
  Company Number: IT-PFIZER INC-2013255696

PATIENT
  Age: 55 Year
  Sex: Female

DRUGS (5)
  1. ZOLOFT [Suspect]
     Dosage: 50MG X 9 TABLETS, SINGLE
     Route: 048
     Dates: start: 20130901, end: 20130901
  2. RIVOTRIL [Suspect]
     Dosage: 2 BOTTLE, SINGLE
     Route: 048
     Dates: start: 20130901, end: 20130901
  3. SEROQUEL [Suspect]
     Dosage: 25MG X 16 TABLETS, SINGLE
     Route: 048
     Dates: start: 20130901, end: 20130901
  4. PLAVIX [Concomitant]
     Dosage: UNK
  5. TORVAST [Concomitant]
     Dosage: UNK

REACTIONS (4)
  - Intentional overdose [Recovering/Resolving]
  - Intentional self-injury [Recovering/Resolving]
  - Drug abuse [Recovering/Resolving]
  - Sopor [Recovering/Resolving]
